FAERS Safety Report 13844280 (Version 3)
Quarter: 2017Q4

REPORT INFORMATION
  Report Type: Spontaneous
  Country: US (occurrence: US)
  Receive Date: 20170808
  Receipt Date: 20171218
  Transmission Date: 20180320
  Serious: Yes (Death, Other)
  Sender: FDA-Public Use
  Company Number: US-PFIZER INC-2017245486

PATIENT
  Age: 65 Year
  Sex: Female
  Weight: 63.39 kg

DRUGS (1)
  1. IBRANCE [Suspect]
     Active Substance: PALBOCICLIB
     Indication: OVARIAN CANCER STAGE III
     Dosage: 125 MG, DAILY
     Route: 048
     Dates: start: 201706, end: 201707

REACTIONS (9)
  - Constipation [Unknown]
  - Platelet count decreased [Not Recovered/Not Resolved]
  - Back pain [Unknown]
  - Hepatic failure [Fatal]
  - Neutropenia [Unknown]
  - Full blood count decreased [Unknown]
  - Sluggishness [Unknown]
  - Ascites [Fatal]
  - Product use in unapproved indication [Unknown]

NARRATIVE: CASE EVENT DATE: 201706
